FAERS Safety Report 7083799-8 (Version None)
Quarter: 2010Q4

REPORT INFORMATION
  Report Type: 
  Country: None (occurrence: None)
  Receive Date: 20101104
  Receipt Date: 20101027
  Transmission Date: 20110411
  Serious: Yes (Other)
  Sender: FDA-Public Use
  Company Number: JP-EISAI INC.-E2090-01375-SPO-JP

PATIENT
  Age: 77 Year
  Sex: Female

DRUGS (1)
  1. ZONISAMIDE [Suspect]
     Dosage: 100 MG
     Route: 048
     Dates: start: 20101001, end: 20101022

REACTIONS (1)
  - NEUTROPENIA [None]
